FAERS Safety Report 11742206 (Version 2)
Quarter: 2015Q4

REPORT INFORMATION
  Report Type: Spontaneous
  Country: VE (occurrence: VE)
  Receive Date: 20151116
  Receipt Date: 20151208
  Transmission Date: 20160304
  Serious: Yes (Hospitalization)
  Sender: FDA-Public Use
  Company Number: PHHY2015VE148590

PATIENT
  Sex: Male

DRUGS (3)
  1. XATRAL [Concomitant]
     Active Substance: ALFUZOSIN
     Indication: HYPERPLASIA
     Dosage: 10 MG, UNK
     Route: 065
  2. SEBIVO [Suspect]
     Active Substance: TELBIVUDINE
     Indication: HEPATITIS B
     Dosage: 600 MG, QD
     Route: 048
  3. BARACLUDE [Concomitant]
     Active Substance: ENTECAVIR
     Indication: HEPATITIS B
     Dosage: 1 MG, QD
     Route: 065

REACTIONS (15)
  - Synovial cyst [Recovering/Resolving]
  - Sepsis [Recovering/Resolving]
  - Hypothermia [Recovering/Resolving]
  - Urinary tract infection [Recovering/Resolving]
  - Hyperhidrosis [Recovering/Resolving]
  - Abdominal lymphadenopathy [Recovering/Resolving]
  - Sleep disorder [Recovering/Resolving]
  - Pyrexia [Recovering/Resolving]
  - Hepatitis B [Recovering/Resolving]
  - Erythema [Recovering/Resolving]
  - Hypoglycaemia [Recovering/Resolving]
  - Hyperglycaemia [Recovering/Resolving]
  - General physical health deterioration [Recovering/Resolving]
  - Leukaemia [Recovering/Resolving]
  - Gait disturbance [Recovering/Resolving]
